FAERS Safety Report 12321138 (Version 1)
Quarter: 2016Q2

REPORT INFORMATION
  Report Type: Spontaneous
  Country: US (occurrence: US)
  Receive Date: 20160502
  Receipt Date: 20160502
  Transmission Date: 20160815
  Serious: Yes (Hospitalization, Other)
  Sender: FDA-Public Use
  Company Number: US-BEH-2016061683

PATIENT
  Age: 69 Year
  Sex: Female
  Weight: 85 kg

DRUGS (27)
  1. SIMVASTATIN. [Concomitant]
     Active Substance: SIMVASTATIN
  2. IRON [Concomitant]
     Active Substance: IRON
  3. CENTURY [Concomitant]
  4. ACETAMINOPHEN. [Concomitant]
     Active Substance: ACETAMINOPHEN
  5. LIDOCAINE. [Concomitant]
     Active Substance: LIDOCAINE
  6. ACYCLOVIR. [Concomitant]
     Active Substance: ACYCLOVIR
  7. DILTIAZEM [Concomitant]
     Active Substance: DILTIAZEM
  8. VITAMIN A [Concomitant]
     Active Substance: VITAMIN A
  9. DIPHENHYDRAMINE. [Concomitant]
     Active Substance: DIPHENHYDRAMINE
  10. CRANBERRY. [Concomitant]
     Active Substance: CRANBERRY
  11. CYANOCOBALAMIN. [Concomitant]
     Active Substance: CYANOCOBALAMIN
  12. SELENIUM [Concomitant]
     Active Substance: SELENIUM
  13. MECLIZINE [Concomitant]
     Active Substance: MECLIZINE HYDROCHLORIDE
  14. OPANA [Concomitant]
     Active Substance: OXYMORPHONE HYDROCHLORIDE
  15. HIZENTRA [Suspect]
     Active Substance: HUMAN IMMUNOGLOBULIN G
     Indication: IMMUNODEFICIENCY COMMON VARIABLE
     Route: 058
     Dates: start: 20110315
  16. ESTROGEN [Concomitant]
     Active Substance: ESTRONE\SUS SCROFA OVARY
  17. DETROL [Concomitant]
     Active Substance: TOLTERODINE TARTRATE
  18. LYRICA [Concomitant]
     Active Substance: PREGABALIN
  19. BENADRYL [Concomitant]
     Active Substance: DIPHENHYDRAMINE HYDROCHLORIDE
  20. OMEPRAZOLE. [Concomitant]
     Active Substance: OMEPRAZOLE
  21. MAXALT [Concomitant]
     Active Substance: RIZATRIPTAN BENZOATE
  22. TRAZODONE [Concomitant]
     Active Substance: TRAZODONE HYDROCHLORIDE
  23. EPIPEN [Concomitant]
     Active Substance: EPINEPHRINE
  24. AMITRIPTYLINE [Concomitant]
     Active Substance: AMITRIPTYLINE
  25. OXYCODONE [Concomitant]
     Active Substance: OXYCODONE
  26. GINKOBA [Concomitant]
     Active Substance: GINKGO
  27. ASPIRIN. [Concomitant]
     Active Substance: ASPIRIN

REACTIONS (1)
  - Eyelid operation [Unknown]

NARRATIVE: CASE EVENT DATE: 20160415
